FAERS Safety Report 7828585-3 (Version None)
Quarter: 2011Q4

REPORT INFORMATION
  Report Type: 
  Country: None (occurrence: None)
  Receive Date: 20111020
  Receipt Date: 20111020
  Transmission Date: 20120403
  Serious: No
  Sender: FDA-Public Use
  Company Number: None

PATIENT
  Age: 70 Year
  Sex: Female
  Weight: 102.96 kg

DRUGS (1)
  1. FORTAMET [Suspect]
     Indication: TYPE 2 DIABETES MELLITUS
     Dosage: 1
     Route: 048
     Dates: start: 20110901, end: 20111015

REACTIONS (2)
  - PRODUCT ODOUR ABNORMAL [None]
  - BLOOD GLUCOSE DECREASED [None]
